FAERS Safety Report 6681721-7 (Version None)
Quarter: 2010Q2

REPORT INFORMATION
  Report Type: 
  Country: None (occurrence: None)
  Receive Date: 20100414
  Receipt Date: 20100406
  Transmission Date: 20101027
  Serious: Yes (Other)
  Sender: FDA-Public Use
  Company Number: JP-PFIZER INC-2010020232

PATIENT
  Age: 15 Year
  Sex: Male
  Weight: 70 kg

DRUGS (1)
  1. ZOLOFT [Suspect]
     Indication: HYPERPHAGIA
     Dosage: 25MG/DAY
     Route: 048
     Dates: start: 20100119, end: 20100209

REACTIONS (5)
  - ABNORMAL BEHAVIOUR [None]
  - ACTIVATION SYNDROME [None]
  - AGITATION [None]
  - IMPULSIVE BEHAVIOUR [None]
  - SUICIDAL IDEATION [None]
